FAERS Safety Report 8557066-7 (Version None)
Quarter: 2012Q3

REPORT INFORMATION
  Report Type: 
  Country: None (occurrence: None)
  Receive Date: 20120801
  Receipt Date: 20120720
  Transmission Date: 20120928
  Serious: Yes (Hospitalization, Disabling, Other)
  Sender: FDA-Public Use
  Company Number: US-009507513-1205USA02857

PATIENT

DRUGS (2)
  1. FOSAMAX [Suspect]
     Indication: OSTEOPOROSIS PROPHYLAXIS
  2. FOSAMAX [Suspect]
     Indication: BONE DISORDER
     Dosage: QW
     Route: 048
     Dates: start: 19960901

REACTIONS (7)
  - FALL [None]
  - OSTEOPOROSIS [None]
  - IMPAIRED HEALING [None]
  - DEVICE FAILURE [None]
  - FEMUR FRACTURE [None]
  - STRESS FRACTURE [None]
  - BONE DENSITY DECREASED [None]
